FAERS Safety Report 18419490 (Version 1)
Quarter: 2020Q4

REPORT INFORMATION
  Report Type: Spontaneous
  Country: US (occurrence: US)
  Receive Date: 20201023
  Receipt Date: 20201023
  Transmission Date: 20210114
  Serious: Yes (Hospitalization)
  Sender: FDA-Public Use
  Company Number: None

PATIENT
  Age: 88 Year
  Sex: Male
  Weight: 83.01 kg

DRUGS (2)
  1. TRAMADOL  (TRAMADOL HCL 50MG TAB) [Suspect]
     Active Substance: TRAMADOL HYDROCHLORIDE
     Indication: MUSCULOSKELETAL CHEST PAIN
     Dosage: ?          OTHER FREQUENCY:UNKNOWN;?
     Route: 048
     Dates: start: 20200707, end: 20200721
  2. TRAMADOL  (TRAMADOL HCL 50MG TAB) [Suspect]
     Active Substance: TRAMADOL HYDROCHLORIDE
     Indication: RIB FRACTURE
     Dosage: ?          OTHER FREQUENCY:UNKNOWN;?
     Route: 048
     Dates: start: 20200707, end: 20200721

REACTIONS (4)
  - Confusional state [None]
  - Incorrect dose administered [None]
  - Hallucinations, mixed [None]
  - Mental status changes [None]

NARRATIVE: CASE EVENT DATE: 20200720
